FAERS Safety Report 7137370-X (Version None)
Quarter: 2010Q4

REPORT INFORMATION
  Report Type: 
  Country: None (occurrence: None)
  Receive Date: 20101206
  Receipt Date: 20101123
  Transmission Date: 20110411
  Serious: Yes (Other)
  Sender: FDA-Public Use
  Company Number: PHHY2010US80031

PATIENT
  Sex: Female

DRUGS (2)
  1. EXJADE [Suspect]
     Indication: APLASTIC ANAEMIA
     Dosage: 250 MG, QD
     Route: 048
  2. BLOOD TRANSFUSION, AUXILIARY PRODUCTS [Concomitant]
     Dosage: EVERY 4 WEEKS

REACTIONS (6)
  - CRYING [None]
  - DERMATITIS DIAPER [None]
  - FUNGAL INFECTION [None]
  - IRRITABILITY [None]
  - NASOPHARYNGITIS [None]
  - SKIN DISORDER [None]
